FAERS Safety Report 8479413-7 (Version None)
Quarter: 2012Q2

REPORT INFORMATION
  Report Type: 
  Country: None (occurrence: None)
  Receive Date: 20120629
  Receipt Date: 20120619
  Transmission Date: 20120825
  Serious: Yes (Hospitalization, Other)
  Sender: FDA-Public Use
  Company Number: US-JNJFOC-20120611388

PATIENT

DRUGS (5)
  1. MITOMYCIN [Suspect]
     Indication: HEPATIC NEOPLASM MALIGNANT
     Route: 050
     Dates: start: 20080101
  2. ETHIODOL [Suspect]
     Indication: HEPATIC NEOPLASM MALIGNANT
     Route: 050
  3. DOXORUBICIN HCL [Suspect]
     Indication: HEPATIC NEOPLASM MALIGNANT
     Route: 050
     Dates: start: 20080101
  4. CISPLATIN [Suspect]
     Indication: HEPATIC NEOPLASM MALIGNANT
     Route: 050
     Dates: start: 20080101
  5. GELFOAM [Suspect]
     Indication: HEPATIC NEOPLASM MALIGNANT
     Route: 050

REACTIONS (6)
  - BILIARY SEPSIS [None]
  - OFF LABEL USE [None]
  - CHOLANGITIS [None]
  - BILIARY DILATATION [None]
  - BILOMA [None]
  - INCORRECT ROUTE OF DRUG ADMINISTRATION [None]
